FAERS Safety Report 8240508-4 (Version None)
Quarter: 2012Q1

REPORT INFORMATION
  Report Type: 
  Country: None (occurrence: None)
  Receive Date: 20120328
  Receipt Date: 20120319
  Transmission Date: 20120608
  Serious: Yes (Hospitalization)
  Sender: FDA-Public Use
  Company Number: US-ROCHE-788061

PATIENT
  Sex: Female
  Weight: 70 kg

DRUGS (2)
  1. LAPATINIB [Suspect]
     Indication: BREAST CANCER METASTATIC
     Dosage: LAST DOSE PRIOR TO SAE: 25/MAY/2011.ADMINISTERED AT LEAST 1 HOUR BEFORE OR 1 HOUR AFTER A MEAL (AS P
     Route: 048
     Dates: start: 20110510, end: 20110525
  2. XELODA [Suspect]
     Indication: BREAST CANCER METASTATIC
     Dosage: LAST DOSE PRIOR TO SAE: 24/MAY/2011. DOSE HELD.
     Route: 048
     Dates: start: 20110510, end: 20110524

REACTIONS (1)
  - INTESTINAL OBSTRUCTION [None]
